FAERS Safety Report 11105890 (Version 1)
Quarter: 2015Q2

REPORT INFORMATION
  Report Type: Spontaneous
  Country: None (occurrence: None)
  Receive Date: 20150511
  Receipt Date: 20150511
  Transmission Date: 20150821
  Serious: Yes (Other)
  Sender: FDA-Public Use
  Company Number: None

PATIENT
  Age: 30 Year
  Sex: Female
  Weight: 63.5 kg

DRUGS (2)
  1. HYDROCODONE [Suspect]
     Active Substance: HYDROCODONE
     Indication: PAIN
     Dosage: EVERY 4 HOURS AS NEEDED
     Route: 048
     Dates: start: 20150305, end: 20150507
  2. HYDROCODONE [Suspect]
     Active Substance: HYDROCODONE
     Indication: MULTIPLE SCLEROSIS
     Dosage: EVERY 4 HOURS AS NEEDED
     Route: 048
     Dates: start: 20150305, end: 20150507

REACTIONS (4)
  - Product substitution issue [None]
  - Product quality issue [None]
  - Inadequate analgesia [None]
  - Product formulation issue [None]

NARRATIVE: CASE EVENT DATE: 20150501
